FAERS Safety Report 7999119-8 (Version None)
Quarter: 2011Q4

REPORT INFORMATION
  Report Type: 
  Country: None (occurrence: None)
  Receive Date: 20111221
  Receipt Date: 20111212
  Transmission Date: 20120403
  Serious: Yes (Other)
  Sender: FDA-Public Use
  Company Number: US-CELGENEUS-163-21880-11121552

PATIENT
  Sex: Female

DRUGS (2)
  1. REVLIMID [Suspect]
     Indication: MULTIPLE MYELOMA
     Dosage: 25 MILLIGRAM
     Route: 048
     Dates: start: 20111001
  2. DEXAMETHASONE [Concomitant]
     Route: 065

REACTIONS (6)
  - ASTHENIA [None]
  - DIZZINESS [None]
  - SPEECH DISORDER [None]
  - LOSS OF CONSCIOUSNESS [None]
  - GAIT DISTURBANCE [None]
  - HYPOAESTHESIA [None]
